FAERS Safety Report 10183713 (Version 2)
Quarter: 2014Q2

REPORT INFORMATION
  Report Type: Spontaneous
  Country: US (occurrence: US)
  Receive Date: 20140520
  Receipt Date: 20140520
  Transmission Date: 20141212
  Serious: Yes (Other)
  Sender: FDA-Public Use
  Company Number: US-ENDO PHARMACEUTICALS INC.-BUTL20130004

PATIENT
  Age: 62 Year
  Sex: Male

DRUGS (2)
  1. BUTALBITAL/ACETAMINOPHEN/CAFFEINE/CODEINE PHOSPHATE CAPSULES [Suspect]
     Indication: PRODUCT USED FOR UNKNOWN INDICATION
     Dosage: 500/3250/400/300 MG
     Route: 048
  2. XANAX [Concomitant]
     Indication: PRODUCT USED FOR UNKNOWN INDICATION
     Dosage: UNK
     Route: 065

REACTIONS (2)
  - Intentional overdose [Unknown]
  - Drug ineffective [Not Recovered/Not Resolved]
